FAERS Safety Report 25819772 (Version 2)
Quarter: 2025Q4

REPORT INFORMATION
  Report Type: Report from Study
  Country: AU (occurrence: AU)
  Receive Date: 20250918
  Receipt Date: 20251007
  Transmission Date: 20260118
  Serious: No
  Sender: ABBVIE
  Company Number: AU-ABBVIE-6460245

PATIENT
  Age: 47 Year
  Sex: Male
  Weight: 80.8 kg

DRUGS (12)
  1. UPADACITINIB [Suspect]
     Active Substance: UPADACITINIB
     Indication: Colitis ulcerative
     Dosage: EVERY NIGHT
     Route: 048
     Dates: start: 20250407
  2. UPADACITINIB [Suspect]
     Active Substance: UPADACITINIB
     Indication: Colitis ulcerative
     Dosage: EVERY NIGHT
     Route: 048
     Dates: start: 20230915, end: 20231116
  3. UPADACITINIB [Suspect]
     Active Substance: UPADACITINIB
     Indication: Colitis ulcerative
     Dosage: EVERY NIGHT;?DOSE:  30/45  MG
     Route: 048
     Dates: start: 20240526, end: 20240912
  4. UPADACITINIB [Suspect]
     Active Substance: UPADACITINIB
     Indication: Colitis ulcerative
     Dosage: EVERY NIGHT
     Route: 048
     Dates: start: 20240406, end: 20240525
  5. UPADACITINIB [Suspect]
     Active Substance: UPADACITINIB
     Indication: Colitis ulcerative
     Dosage: EVERY NIGHT
     Route: 048
     Dates: start: 20231116, end: 20240406
  6. UPADACITINIB [Suspect]
     Active Substance: UPADACITINIB
     Indication: Colitis ulcerative
     Dosage: EVERY NIGHT
     Route: 048
     Dates: start: 20240913, end: 20250406
  7. FERROUS SULFATE [Concomitant]
     Active Substance: FERROUS SULFATE
     Indication: Iron deficiency
     Route: 048
     Dates: start: 202308
  8. MESALAMINE [Concomitant]
     Active Substance: MESALAMINE
     Indication: Colitis ulcerative
     Route: 048
     Dates: start: 202002
  9. PRIMOTESTON [Concomitant]
     Indication: Hypogonadism
     Dosage: TIME INTERVAL: 0.33333333 WEEKS: DOSAGE: 250 MG/L
     Route: 030
     Dates: start: 20140101
  10. TACROLIMUS [Concomitant]
     Active Substance: TACROLIMUS
     Indication: Colitis ulcerative
     Route: 048
     Dates: start: 20250429
  11. TACROLIMUS [Concomitant]
     Active Substance: TACROLIMUS
     Indication: Colitis ulcerative
     Route: 048
     Dates: start: 20250407, end: 20250416
  12. TACROLIMUS [Concomitant]
     Active Substance: TACROLIMUS
     Indication: Colitis ulcerative
     Route: 048
     Dates: start: 20250417, end: 20250429

REACTIONS (1)
  - C-reactive protein increased [Recovered/Resolved]

NARRATIVE: CASE EVENT DATE: 20250528
